FAERS Safety Report 10055597 (Version 1)
Quarter: 2014Q2

REPORT INFORMATION
  Report Type: Spontaneous
  Country: US (occurrence: None)
  Receive Date: 20140402
  Receipt Date: 20140402
  Transmission Date: 20141212
  Serious: Yes (Death)
  Sender: FDA-Public Use
  Company Number: None

PATIENT
  Age: 84 Year
  Sex: Male
  Weight: 65 kg

DRUGS (3)
  1. WARFARIN [Suspect]
     Indication: ATRIAL FIBRILLATION
     Route: 048
  2. ASPIRIN [Suspect]
     Indication: CARDIAC DISORDER
     Route: 048
  3. ASPIRIN [Suspect]
     Indication: PROPHYLAXIS
     Route: 048

REACTIONS (3)
  - Fall [None]
  - Unresponsive to stimuli [None]
  - Haemorrhage intracranial [None]
